FAERS Safety Report 6542736-2 (Version None)
Quarter: 2010Q1

REPORT INFORMATION
  Report Type: 
  Country: None (occurrence: None)
  Receive Date: 20100114
  Receipt Date: 20090727
  Transmission Date: 20100710
  Serious: Yes (Disabling)
  Sender: FDA-Public Use
  Company Number: 2009007513

PATIENT
  Age: 40 Year
  Sex: Female
  Weight: 97.5234 kg

DRUGS (7)
  1. ACTIQ [Suspect]
     Indication: PAIN
     Dosage: 800 MCG (800 MCG, 1 IN 1 D), ORAL
     Route: 048
     Dates: start: 20050301, end: 20090301
  2. CYMBALTA [Concomitant]
  3. CELEBREX [Concomitant]
  4. AMBIEN [Concomitant]
  5. FENTANYL-100 [Concomitant]
  6. VALIUM [Concomitant]
  7. NEURONTIN [Concomitant]

REACTIONS (1)
  - DENTAL CARIES [None]
